FAERS Safety Report 23992590 (Version 1)
Quarter: 2024Q2

REPORT INFORMATION
  Report Type: Spontaneous
  Country: ES (occurrence: ES)
  Receive Date: 20240620
  Receipt Date: 20240620
  Transmission Date: 20240716
  Serious: Yes (Life-Threatening, Hospitalization)
  Sender: FDA-Public Use
  Company Number: None

PATIENT
  Age: 21 Year
  Sex: Female
  Weight: 50 kg

DRUGS (20)
  1. Buprex [Concomitant]
     Indication: Product used for unknown indication
     Dosage: 0.500ML
     Route: 065
     Dates: start: 20050302, end: 20050302
  2. CISATRACURIUM [Concomitant]
     Active Substance: CISATRACURIUM
     Indication: Product used for unknown indication
     Route: 065
  3. FENTANYL [Concomitant]
     Active Substance: FENTANYL\FENTANYL CITRATE
     Indication: Product used for unknown indication
     Route: 065
  4. KURGAN [Concomitant]
     Indication: Product used for unknown indication
     Route: 065
  5. MANNITOL [Concomitant]
     Active Substance: MANNITOL
     Indication: Product used for unknown indication
     Route: 065
  6. MIDAZOLAM [Concomitant]
     Active Substance: MIDAZOLAM
     Indication: Product used for unknown indication
     Route: 065
  7. PANTOPRAZOLE [Concomitant]
     Active Substance: PANTOPRAZOLE
     Indication: Product used for unknown indication
     Route: 065
  8. PROPOFOL [Concomitant]
     Active Substance: PROPOFOL
     Indication: Product used for unknown indication
     Route: 065
  9. REMIFENTANIL [Concomitant]
     Active Substance: REMIFENTANIL
     Indication: Product used for unknown indication
     Route: 065
  10. SEVOFLURANE [Concomitant]
     Active Substance: SEVOFLURANE
     Indication: Product used for unknown indication
     Route: 065
  11. SOLINITRINA [Concomitant]
     Indication: Product used for unknown indication
     Route: 065
  12. VALIUM [Concomitant]
     Active Substance: DIAZEPAM
     Indication: Product used for unknown indication
     Route: 065
  13. ZOFRAN [Concomitant]
     Active Substance: ONDANSETRON HYDROCHLORIDE
     Indication: Product used for unknown indication
     Dosage: 16.000MG QD
     Route: 048
     Dates: start: 20050302, end: 20050308
  14. VALPROATE SODIUM [Interacting]
     Active Substance: VALPROATE SODIUM
     Indication: Seizure
     Dosage: 1.500G QD
     Route: 048
     Dates: start: 20050302, end: 20050310
  15. KETOROLAC TROMETHAMINE [Interacting]
     Active Substance: KETOROLAC TROMETHAMINE
     Indication: Product used for unknown indication
     Dosage: 90.000MG QD
     Route: 042
     Dates: start: 20050302, end: 20050308
  16. METAMIZOLE\PROPOXYPHENE [Interacting]
     Active Substance: METAMIZOLE\PROPOXYPHENE
     Indication: Pyrexia
     Dosage: 2.000MG
     Route: 042
     Dates: start: 20050301, end: 20050308
  17. OMEPRAZOLE [Interacting]
     Active Substance: DONEPEZIL HYDROCHLORIDE\OMEPRAZOLE\OMEPRAZOLE MAGNESIUM
     Indication: Product used for unknown indication
     Dosage: 40.000MG QD
     Route: 065
     Dates: start: 20050302, end: 20050308
  18. ACETAMINOPHEN [Interacting]
     Active Substance: ACETAMINOPHEN
     Indication: Product used for unknown indication
     Dosage: 4.000G QD
     Route: 042
     Dates: start: 20050302, end: 20050308
  19. CLORAZEPATE DIPOTASSIUM [Interacting]
     Active Substance: CLORAZEPATE DIPOTASSIUM
     Indication: Product used for unknown indication
     Dosage: 10.000MG QD
     Route: 048
     Dates: start: 20050302, end: 20050308
  20. CLORAZEPATE DIPOTASSIUM [Interacting]
     Active Substance: CLORAZEPATE DIPOTASSIUM
     Dosage: UNK
     Route: 048
     Dates: start: 20050302, end: 20050308

REACTIONS (3)
  - Pancytopenia [Recovered/Resolved]
  - Leukopenia [Recovered/Resolved]
  - Agranulocytosis [Recovered/Resolved]

NARRATIVE: CASE EVENT DATE: 20050303
